FAERS Safety Report 6243321-2 (Version None)
Quarter: 2009Q2

REPORT INFORMATION
  Report Type: 
  Country: None (occurrence: None)
  Receive Date: 20090624
  Receipt Date: 20090619
  Transmission Date: 20091009
  Serious: Yes (Death, Hospitalization)
  Sender: FDA-Public Use
  Company Number: PHHY2009MX23459

PATIENT
  Age: 78 Year
  Sex: Female

DRUGS (1)
  1. TEGRETOL [Suspect]
     Indication: EPILEPSY
     Dosage: 2 TABLETS PER DAY
     Route: 048
     Dates: start: 20070601

REACTIONS (3)
  - LUNG INFILTRATION [None]
  - PNEUMONIA [None]
  - RESPIRATORY ARREST [None]
